FAERS Safety Report 12462541 (Version 1)
Quarter: 2016Q2

REPORT INFORMATION
  Report Type: Spontaneous
  Country: US (occurrence: US)
  Receive Date: 20160614
  Receipt Date: 20160614
  Transmission Date: 20160815
  Serious: No
  Sender: FDA-Public Use
  Company Number: US-BIOGEN-2016BI00243926

PATIENT
  Age: 61 Year
  Sex: Female

DRUGS (4)
  1. AVONEX [Suspect]
     Active Substance: INTERFERON BETA-1A
     Dates: start: 20101013
  2. AVONEX [Suspect]
     Active Substance: INTERFERON BETA-1A
     Dates: start: 20150612
  3. AVONEX [Suspect]
     Active Substance: INTERFERON BETA-1A
     Indication: MULTIPLE SCLEROSIS
     Dates: start: 19990101
  4. AVONEX [Suspect]
     Active Substance: INTERFERON BETA-1A
     Dates: start: 20141111

REACTIONS (1)
  - Influenza [Recovered/Resolved]

NARRATIVE: CASE EVENT DATE: 201605
